FAERS Safety Report 16892107 (Version 2)
Quarter: 2019Q4

REPORT INFORMATION
  Report Type: Report from Study
  Country: DE (occurrence: DE)
  Receive Date: 20191007
  Receipt Date: 20191114
  Transmission Date: 20200122
  Serious: Yes (Hospitalization)
  Sender: FDA-Public Use
  Company Number: DE-CELGENEUS-DEU-20190909586

PATIENT
  Age: 69 Year
  Sex: Female
  Weight: 80 kg

DRUGS (3)
  1. POMALIDOMIDE [Suspect]
     Active Substance: POMALIDOMIDE
     Indication: MYELOFIBROSIS
     Route: 048
     Dates: start: 20180315, end: 20190925
  2. RUXOLITINIB [Suspect]
     Active Substance: RUXOLITINIB
     Indication: MYELOFIBROSIS
     Route: 065
     Dates: start: 20180315, end: 20190925
  3. BISOPROLOL [Concomitant]
     Active Substance: BISOPROLOL
     Indication: PRODUCT USED FOR UNKNOWN INDICATION
     Dosage: 5 MILLIGRAM
     Route: 048

REACTIONS (2)
  - Arrhythmia [Unknown]
  - Infection [Unknown]

NARRATIVE: CASE EVENT DATE: 20190925
